FAERS Safety Report 5476799-2 (Version None)
Quarter: 2007Q4

REPORT INFORMATION
  Report Type: 
  Country: None (occurrence: None)
  Receive Date: 20071003
  Receipt Date: 20071003
  Transmission Date: 20080405
  Serious: Yes (Hospitalization, Other)
  Sender: FDA-Public Use
  Company Number: None

PATIENT
  Age: 58 Year
  Sex: Male
  Weight: 79.7 kg

DRUGS (15)
  1. VORICONAZOLE [Suspect]
     Indication: BRONCHOPULMONARY ASPERGILLOSIS
     Dosage: 300MG Q12H IVPB
     Route: 042
     Dates: start: 20070907, end: 20070914
  2. VORICONAZOLE [Suspect]
     Indication: BRONCHOPULMONARY ASPERGILLOSIS
     Dosage: 200MG Q12H PO
     Route: 048
     Dates: start: 20070914, end: 20070917
  3. ACETAMINOPHEN [Concomitant]
  4. ADDERALL 20 [Concomitant]
  5. BUMETANIDE [Concomitant]
  6. CEFEPIME [Concomitant]
  7. NEUPOGEN [Concomitant]
  8. MEGESTROL ACETATE [Concomitant]
  9. BACTRIM + LEUCOVORIN [Concomitant]
  10. METHYLPREDNISOLONE [Concomitant]
  11. METRONIDAZOLE [Concomitant]
  12. MYCOPHENOLATE MOFETIL [Concomitant]
  13. PANTOPRAZOLE SODIUM [Concomitant]
  14. VALACYCLOVIR [Concomitant]
  15. TACROLIMUS [Concomitant]

REACTIONS (5)
  - ACUTE GRAFT VERSUS HOST DISEASE IN LIVER [None]
  - CHOLESTASIS [None]
  - FUNGAL INFECTION [None]
  - HEPATOTOXICITY [None]
  - RENAL FAILURE ACUTE [None]
